FAERS Safety Report 23327059 (Version 1)
Quarter: 2023Q4

REPORT INFORMATION
  Report Type: Report from Study
  Country: IE (occurrence: None)
  Receive Date: 20231221
  Receipt Date: 20231221
  Transmission Date: 20240110
  Serious: Yes (Death, Life-Threatening, Hospitalization)
  Sender: FDA-Public Use
  Company Number: 2023A247672

PATIENT
  Age: 14525 Day
  Sex: Female

DRUGS (12)
  1. FASENRA [Suspect]
     Active Substance: BENRALIZUMAB
     Indication: Asthma
     Route: 058
     Dates: start: 2020, end: 20231025
  2. MONTELUKAST [Concomitant]
     Active Substance: MONTELUKAST SODIUM
  3. AZITHROMYCIN [Concomitant]
     Active Substance: AZITHROMYCIN
  4. ESOMEPRAZOLE [Concomitant]
     Active Substance: ESOMEPRAZOLE
  5. GLUCOPHAGE [Concomitant]
     Active Substance: METFORMIN HYDROCHLORIDE
  6. ALFOREX [Concomitant]
  7. ESCITALOPRAM [Concomitant]
     Active Substance: ESCITALOPRAM OXALATE
  8. FLUCONAZOLE [Concomitant]
     Active Substance: FLUCONAZOLE
  9. CALCIUM [Concomitant]
     Active Substance: CALCIUM
  10. LIQUID OXYGEN [Concomitant]
     Active Substance: OXYGEN
  11. OZEMPIC [Concomitant]
     Active Substance: SEMAGLUTIDE
  12. DELTCORTRIL [Concomitant]

REACTIONS (2)
  - Asthma [Fatal]
  - Respiratory disorder [Not Recovered/Not Resolved]

NARRATIVE: CASE EVENT DATE: 20231218
